FAERS Safety Report 7271709-X (Version None)
Quarter: 2011Q1

REPORT INFORMATION
  Report Type: 
  Country: None (occurrence: None)
  Receive Date: 20110203
  Receipt Date: 20110124
  Transmission Date: 20110831
  Serious: Yes (Death)
  Sender: FDA-Public Use
  Company Number: US-CELGENEUS-163-21880-10123269

PATIENT
  Sex: Female

DRUGS (17)
  1. CENTRUM SILVER [Concomitant]
     Route: 048
  2. TOPROL-XL [Concomitant]
     Route: 048
  3. LIDODERM [Concomitant]
     Route: 065
  4. ASPIRIN [Concomitant]
     Route: 048
  5. DECADRON [Concomitant]
     Route: 048
  6. ZOMETA [Concomitant]
     Route: 065
  7. VALTREX [Concomitant]
     Route: 048
  8. MYLANTA [Concomitant]
     Route: 065
  9. ANZEMET [Concomitant]
     Route: 048
  10. COLACE [Concomitant]
     Route: 048
  11. REVLIMID [Suspect]
     Indication: MULTIPLE MYELOMA
     Route: 048
     Dates: start: 20090201, end: 20090401
  12. RESTASIS [Concomitant]
     Route: 065
  13. CALCIUM PLUS VITAMIN D [Concomitant]
     Dosage: 600
     Route: 048
  14. COUMADIN [Concomitant]
     Route: 048
  15. SOTALOL HCL [Concomitant]
     Route: 048
  16. FLAXSEED OIL [Concomitant]
     Route: 048
  17. HYDROCODONE BITARTRATE/HOMATROPINE METHYBROMIDE [Concomitant]
     Route: 048

REACTIONS (3)
  - FAILURE TO THRIVE [None]
  - MULTIPLE MYELOMA [None]
  - DYSPHAGIA [None]
